FAERS Safety Report 6120865-5 (Version None)
Quarter: 2009Q1

REPORT INFORMATION
  Report Type: 
  Country: None (occurrence: None)
  Receive Date: 20090313
  Receipt Date: 20090311
  Transmission Date: 20090719
  Serious: Yes (Death)
  Sender: FDA-Public Use
  Company Number: GXKR2009DE02931

PATIENT
  Age: 29 Year
  Sex: Male

DRUGS (3)
  1. CITALON (NGX) (CITALOPRAM) UNKNOWN [Suspect]
     Indication: DEPRESSION
     Dosage: 20 MG, 40 MG, ORAL, 20 MG, ORAL
     Dates: start: 20090202, end: 20090207
  2. CITALON (NGX) (CITALOPRAM) UNKNOWN [Suspect]
     Indication: DEPRESSION
     Dosage: 20 MG, 40 MG, ORAL, 20 MG, ORAL
     Dates: start: 20090208, end: 20090214
  3. CITALON (NGX) (CITALOPRAM) UNKNOWN [Suspect]
     Indication: DEPRESSION
     Dosage: 20 MG, 40 MG, ORAL, 20 MG, ORAL
     Dates: start: 20090215, end: 20090218

REACTIONS (3)
  - COMPLETED SUICIDE [None]
  - PALPITATIONS [None]
  - RESTLESSNESS [None]
